FAERS Safety Report 7150089-4 (Version None)
Quarter: 2010Q4

REPORT INFORMATION
  Report Type: 
  Country: None (occurrence: None)
  Receive Date: 20101210
  Receipt Date: 20101129
  Transmission Date: 20110411
  Serious: Yes (Disabling)
  Sender: FDA-Public Use
  Company Number: ES-ELI_LILLY_AND_COMPANY-ES201011007227

PATIENT
  Sex: Male
  Weight: 47 kg

DRUGS (5)
  1. STRATTERA [Suspect]
     Indication: ATTENTION DEFICIT/HYPERACTIVITY DISORDER
     Dosage: 1 D/F, UNK
  2. STRATTERA [Suspect]
     Dosage: 7 MG, DAILY (1/D)
     Route: 048
  3. STRATTERA [Suspect]
     Dosage: 25 MG, DAILY (1/D)
     Route: 048
  4. STRATTERA [Suspect]
     Dosage: 40 MG, DAILY (1/D)
     Route: 048
  5. STRATTERA [Suspect]
     Dosage: 25 MG, UNK

REACTIONS (3)
  - ARRHYTHMIA [None]
  - DECREASED APPETITE [None]
  - SOMNOLENCE [None]
